FAERS Safety Report 25565337 (Version 1)
Quarter: 2025Q3

REPORT INFORMATION
  Report Type: Spontaneous
  Country: GB (occurrence: GB)
  Receive Date: 20250716
  Receipt Date: 20250716
  Transmission Date: 20251020
  Serious: Yes (Other)
  Sender: MSN LABORATORIES PRIVATE LIMITED
  Company Number: None

PATIENT

DRUGS (9)
  1. ATORVASTATIN [Suspect]
     Active Substance: ATORVASTATIN
     Indication: Blood cholesterol increased
     Dosage: TAKE ONE TABLET ONCE A DAY TO HELP LOWER CHOLESTEROL
     Route: 065
     Dates: start: 20250116
  2. NITROFURANTOIN [Concomitant]
     Active Substance: NITROFURANTOIN
     Indication: Ill-defined disorder
     Dosage: TAKE ONE CAPSULE TWICE DAILY FOR 3 DAYS, TO TRE...
     Route: 065
     Dates: start: 20250523, end: 20250526
  3. AMOXICILLIN [Concomitant]
     Active Substance: AMOXICILLIN
     Indication: Ill-defined disorder
     Dosage: TAKE ONE CAPSULE THREE TIMES A DAY FOR INFECTION
     Route: 065
     Dates: start: 20250527, end: 20250603
  4. AMOXICILLIN [Concomitant]
     Active Substance: AMOXICILLIN
     Indication: Infection
  5. EZETIMIBE [Concomitant]
     Active Substance: EZETIMIBE
     Indication: Ill-defined disorder
     Dosage: TAKE ONE TABLET ONCE A DAY TO HELP LOWER CHOLESTEROL
     Route: 065
     Dates: start: 20250702
  6. LEVOTHYROXINE [Concomitant]
     Active Substance: LEVOTHYROXINE
     Indication: Ill-defined disorder
     Dosage: TAKE ONE DAILY
     Route: 065
     Dates: start: 20250116
  7. TIMOLOL MALEATE [Concomitant]
     Active Substance: TIMOLOL MALEATE
     Indication: Ill-defined disorder
     Dosage: ONE DROP ONCE A DAY IN BOTH EYES
     Route: 065
     Dates: start: 20250116
  8. DULOXETINE [Concomitant]
     Active Substance: DULOXETINE
     Indication: Ill-defined disorder
     Dosage: TAKE ONE CAPSULE ONCE A DAY.
     Route: 065
     Dates: start: 20250207, end: 20250702
  9. MEBEVERINE HYDROCHLORIDE [Concomitant]
     Active Substance: MEBEVERINE HYDROCHLORIDE
     Indication: Ill-defined disorder
     Dosage: TAKE ONE TABLET THREE TIMES A DAY 20 MINUTES BE...
     Route: 065
     Dates: start: 20250311

REACTIONS (2)
  - Hypoaesthesia [Recovered/Resolved]
  - Myalgia [Recovered/Resolved]
